FAERS Safety Report 8608026-9 (Version None)
Quarter: 2012Q3

REPORT INFORMATION
  Report Type: 
  Country: None (occurrence: None)
  Receive Date: 20120809
  Receipt Date: 20120809
  Transmission Date: 20120928
  Serious: Yes (Life-Threatening, Hospitalization, Other)
  Sender: FDA-Public Use
  Company Number: None

PATIENT
  Age: 47 Year
  Sex: Male
  Weight: 92.9874 kg

DRUGS (4)
  1. PANTAPROZOLE SODIUM [Suspect]
     Indication: GASTROOESOPHAGEAL REFLUX DISEASE
     Dosage: 40 MG 1 X DAY PO
     Route: 048
     Dates: start: 20090502, end: 20090603
  2. PANTAPROZOLE SODIUM [Suspect]
     Indication: EOSINOPHILIC OESOPHAGITIS
     Dosage: 40 MG 1 X DAY PO
     Route: 048
     Dates: start: 20090502, end: 20090603
  3. PANTAPROZOLE SODIUM [Suspect]
     Indication: GASTROOESOPHAGEAL REFLUX DISEASE
     Dosage: 40 MG 1 X DAY PO
     Route: 048
     Dates: start: 20120602, end: 20120702
  4. PANTAPROZOLE SODIUM [Suspect]
     Indication: EOSINOPHILIC OESOPHAGITIS
     Dosage: 40 MG 1 X DAY PO
     Route: 048
     Dates: start: 20120602, end: 20120702

REACTIONS (3)
  - INFLAMMATION [None]
  - PRODUCT SUBSTITUTION ISSUE [None]
  - ABDOMINAL PAIN UPPER [None]
